FAERS Safety Report 20695869 (Version 1)
Quarter: 2022Q2

REPORT INFORMATION
  Report Type: Spontaneous
  Country: FR (occurrence: FR)
  Receive Date: 20220411
  Receipt Date: 20220411
  Transmission Date: 20220721
  Serious: Yes (Other)
  Sender: FDA-Public Use
  Company Number: None

PATIENT
  Age: 38 Year
  Sex: Male

DRUGS (3)
  1. METHYLPHENIDATE HYDROCHLORIDE [Suspect]
     Active Substance: METHYLPHENIDATE HYDROCHLORIDE
     Indication: Product used for unknown indication
     Dosage: 120 MG, BID (120 MG PAR JOUR EN 2 PRISES UNE AVALEE UNE INJECTEE)
     Route: 042
  2. OXAZEPAM [Suspect]
     Active Substance: OXAZEPAM
     Indication: Product used for unknown indication
     Dosage: 300 MG, QD (6CP A 50MG TOUS LES JOURS)
     Route: 048
  3. METHYLPHENIDATE HYDROCHLORIDE [Suspect]
     Active Substance: METHYLPHENIDATE HYDROCHLORIDE
     Indication: Product used for unknown indication
     Dosage: 200 MG (2 CP 40MG LE MATIN 1CP 40MG LE MIDI ET 2 CP DE 40MG)
     Route: 042

REACTIONS (1)
  - Intentional product misuse [Unknown]
